FAERS Safety Report 4680371-1 (Version None)
Quarter: 2005Q2

REPORT INFORMATION
  Report Type: 
  Country: None (occurrence: None)
  Receive Date: 20050601
  Receipt Date: 20050519
  Transmission Date: 20051028
  Serious: Yes (Other)
  Sender: FDA-Public Use
  Company Number: 430007N05FRA

PATIENT
  Age: 21 Year
  Sex: Female

DRUGS (1)
  1. MITOXANTRONE [Suspect]
     Indication: MULTIPLE SCLEROSIS
     Dosage: 20 MG, 1 IN 1 CYCLE, INTRAVENOUS
     Route: 042
     Dates: start: 20050414, end: 20050414

REACTIONS (2)
  - FEBRILE NEUTROPENIA [None]
  - POST PROCEDURAL VOMITING [None]
